FAERS Safety Report 22094095 (Version 3)
Quarter: 2023Q2

REPORT INFORMATION
  Report Type: Spontaneous
  Country: US (occurrence: US)
  Receive Date: 20230314
  Receipt Date: 20230522
  Transmission Date: 20230722
  Serious: Yes (Other)
  Sender: FDA-Public Use
  Company Number: US-BRISTOL-MYERS SQUIBB COMPANY-2023-035698

PATIENT
  Age: 74 Year
  Sex: Male

DRUGS (2)
  1. LENALIDOMIDE [Suspect]
     Active Substance: LENALIDOMIDE
     Indication: Plasma cell myeloma
     Dosage: TAKE 1 CAPSULE WHOLE BY MOUTH W/ OR W/O FOOD DAILY ON DAYS 1-14 FOLLOWED BY 7 DAYS OFF. DONT BREAK,
     Route: 048
  2. LENALIDOMIDE [Suspect]
     Active Substance: LENALIDOMIDE
     Route: 048
     Dates: start: 20230308

REACTIONS (3)
  - Pneumonia viral [Recovered/Resolved]
  - Off label use [Unknown]
  - Infection [Recovering/Resolving]
